FAERS Safety Report 12504027 (Version 1)
Quarter: 2016Q2

REPORT INFORMATION
  Report Type: Spontaneous
  Country: US (occurrence: US)
  Receive Date: 20160628
  Receipt Date: 20160628
  Transmission Date: 20160815
  Serious: No
  Sender: FDA-Public Use
  Company Number: US-VERTEX PHARMACEUTICALS-2016-004025

PATIENT
  Age: 23 Year
  Sex: Female
  Weight: 57 kg

DRUGS (12)
  1. CLARITIN-D 12 HOUR [Concomitant]
     Active Substance: LORATADINE\PSEUDOEPHEDRINE SULFATE
  2. AQUADEKS [Concomitant]
     Active Substance: MINERALS\VITAMINS
  3. PULMOZYME [Concomitant]
     Active Substance: DORNASE ALFA
  4. HYDROCODONE [Concomitant]
     Active Substance: HYDROCODONE
  5. PROBIOTICS [Concomitant]
     Active Substance: PROBIOTICS NOS
  6. SULFAMETHOXAZOLE [Concomitant]
     Active Substance: SULFAMETHOXAZOLE
  7. CREON [Concomitant]
     Active Substance: PANCRELIPASE AMYLASE\PANCRELIPASE LIPASE\PANCRELIPASE PROTEASE
  8. URSODIOL. [Concomitant]
     Active Substance: URSODIOL
  9. OMEPRAZOLE. [Concomitant]
     Active Substance: OMEPRAZOLE
  10. LEVOFLOXACIN. [Concomitant]
     Active Substance: LEVOFLOXACIN
  11. ORKAMBI [Suspect]
     Active Substance: IVACAFTOR\LUMACAFTOR
     Indication: CYSTIC FIBROSIS
     Dosage: 2 DF, BID
     Route: 048
     Dates: start: 201603
  12. TUNA OMEGA 3 [Concomitant]

REACTIONS (1)
  - Breast pain [Not Recovered/Not Resolved]

NARRATIVE: CASE EVENT DATE: 201603
